FAERS Safety Report 8096860-6 (Version None)
Quarter: 2012Q1

REPORT INFORMATION
  Report Type: 
  Country: None (occurrence: None)
  Receive Date: 20120129
  Receipt Date: 20111204
  Transmission Date: 20120608
  Serious: No
  Sender: FDA-Public Use
  Company Number: US-ABBOTT-11P-163-0880685-00

PATIENT
  Age: 38 Year
  Sex: Female

DRUGS (1)
  1. HUMIRA [Suspect]
     Indication: CROHN'S DISEASE
     Dates: start: 20110401

REACTIONS (5)
  - DRUG DOSE OMISSION [None]
  - INCORRECT STORAGE OF DRUG [None]
  - ARTHRALGIA [None]
  - CROHN'S DISEASE [None]
  - DIARRHOEA [None]
